FAERS Safety Report 19085730 (Version 2)
Quarter: 2021Q4

REPORT INFORMATION
  Report Type: Spontaneous
  Country: US (occurrence: US)
  Receive Date: 20210402
  Receipt Date: 20211014
  Transmission Date: 20220303
  Serious: Yes (Hospitalization, Other)
  Sender: FDA-Public Use
  Company Number: US-GRANULES-US-2021GRALIT00211

PATIENT
  Age: 23 Year
  Sex: Male

DRUGS (3)
  1. IBUPROFEN [Suspect]
     Active Substance: IBUPROFEN
     Indication: Product used for unknown indication
     Route: 048
  2. MAGNESIUM [Interacting]
     Active Substance: MAGNESIUM
     Indication: Electrocardiogram QT prolonged
     Route: 065
  3. SODIUM BICARBONATE [Interacting]
     Active Substance: SODIUM BICARBONATE
     Indication: Electrocardiogram QT prolonged
     Route: 065

REACTIONS (11)
  - Toxicity to various agents [Recovered/Resolved]
  - Agitation [Recovered/Resolved]
  - Delirium [Recovered/Resolved]
  - Unresponsive to stimuli [Recovered/Resolved]
  - Electrocardiogram QT prolonged [Recovered/Resolved]
  - Metabolic acidosis [Recovered/Resolved]
  - Renal injury [Recovered/Resolved]
  - Gastrointestinal haemorrhage [Recovered/Resolved]
  - Mental status changes [Recovered/Resolved]
  - Suicide attempt [Unknown]
  - Intentional overdose [Unknown]
